FAERS Safety Report 17884975 (Version 2)
Quarter: 2020Q3

REPORT INFORMATION
  Report Type: Report from Study
  Country: US (occurrence: US)
  Receive Date: 20200611
  Receipt Date: 20200709
  Transmission Date: 20201103
  Serious: Yes (Hospitalization)
  Sender: FDA-Public Use
  Company Number: US-EISAI MEDICAL RESEARCH-EC-2020-073083

PATIENT
  Age: 72 Year
  Sex: Male

DRUGS (3)
  1. LENVIMA [Suspect]
     Active Substance: LENVATINIB
     Route: 048
     Dates: start: 20200526
  2. LENVIMA [Suspect]
     Active Substance: LENVATINIB
     Indication: PROSTATE CANCER METASTATIC
     Route: 048
     Dates: start: 20200320, end: 20200428
  3. LENVIMA [Suspect]
     Active Substance: LENVATINIB
     Route: 048
     Dates: start: 20200507, end: 202005

REACTIONS (6)
  - Decreased appetite [Not Recovered/Not Resolved]
  - Urethral fistula [Not Recovered/Not Resolved]
  - Blood pressure increased [Not Recovered/Not Resolved]
  - Sepsis [Not Recovered/Not Resolved]
  - Asthenia [Unknown]
  - Urethral abscess [Not Recovered/Not Resolved]

NARRATIVE: CASE EVENT DATE: 202004
